FAERS Safety Report 8530866-5 (Version None)
Quarter: 2012Q3

REPORT INFORMATION
  Report Type: 
  Country: None (occurrence: None)
  Receive Date: 20120723
  Receipt Date: 20120711
  Transmission Date: 20120928
  Serious: Yes (Death)
  Sender: FDA-Public Use
  Company Number: US-ROCHE-1086981

PATIENT
  Sex: Female
  Weight: 45 kg

DRUGS (4)
  1. TYLENOL [Concomitant]
     Route: 048
     Dates: start: 20120613
  2. PERTUZUMAB [Suspect]
     Indication: BREAST CANCER
     Route: 042
     Dates: start: 20120613
  3. HERCEPTIN [Concomitant]
     Route: 042
     Dates: start: 20120613
  4. SODIUM CHLORIDE [Concomitant]
     Route: 042
     Dates: start: 20120613

REACTIONS (1)
  - DISEASE PROGRESSION [None]
